FAERS Safety Report 5636529-8 (Version None)
Quarter: 2008Q1

REPORT INFORMATION
  Report Type: 
  Country: None (occurrence: None)
  Receive Date: 20080219
  Receipt Date: 20080206
  Transmission Date: 20080703
  Serious: Yes (Life-Threatening, Hospitalization)
  Sender: FDA-Public Use
  Company Number: 2008002338

PATIENT
  Age: 56 Year
  Sex: Female

DRUGS (9)
  1. CETIRIZINE HCL [Suspect]
     Indication: DERMATITIS ATOPIC
     Dosage: 10 MG, ORAL
     Route: 048
     Dates: start: 20080115, end: 20080116
  2. CEFDINIR [Concomitant]
  3. CEFCAPENE PIVOXIL HYDROCHLORIDE (CEFCAPENE PIVOXIL HYDROCHLORIDE) [Concomitant]
  4. REBAMIPIDE (REBAMIPIDE) [Concomitant]
  5. TACROLIMUS [Concomitant]
  6. MOMETASONE FUROATE [Concomitant]
  7. BETAMETHASONE BUTYRATE PROPIONATE (BETAMETHASONE BUTYRATE PROPIONATE) [Concomitant]
  8. OLOPATADINE HYDROCHLORIDE [Concomitant]
  9. PHENOBARBITAL TAB [Concomitant]

REACTIONS (8)
  - ATRIAL FIBRILLATION [None]
  - BRAIN NATRIURETIC PEPTIDE INCREASED [None]
  - CEREBRAL INFARCTION [None]
  - EMBOLISM [None]
  - FACIAL PALSY [None]
  - LEFT ATRIAL DILATATION [None]
  - MITRAL VALVE INCOMPETENCE [None]
  - PALPITATIONS [None]
